FAERS Safety Report 6407885-8 (Version None)
Quarter: 2009Q4

REPORT INFORMATION
  Report Type: 
  Country: None (occurrence: None)
  Receive Date: 20091020
  Receipt Date: 20091011
  Transmission Date: 20100525
  Serious: Yes (Other)
  Sender: FDA-Public Use
  Company Number: US-JNJCH-2009027289

PATIENT
  Sex: Female

DRUGS (1)
  1. BENADRYL ALLERGY QUICK DISSOLVE STRIPS [Suspect]
     Indication: HYPERSENSITIVITY
     Dosage: TEXT:1 STRIP ONCE
     Route: 048

REACTIONS (3)
  - APPLICATION SITE ANAESTHESIA [None]
  - APPLICATION SITE IRRITATION [None]
  - SPEECH DISORDER [None]
